FAERS Safety Report 23038110 (Version 1)
Quarter: 2023Q4

REPORT INFORMATION
  Report Type: Other
  Country: US (occurrence: US)
  Receive Date: 20231006
  Receipt Date: 20231006
  Transmission Date: 20240109
  Serious: Yes (Hospitalization, Other)
  Sender: FDA-Public Use
  Company Number: US-PPDUS-2023ST002686

PATIENT
  Age: 69 Year

DRUGS (1)
  1. TAGRAXOFUSP-ERZS [Suspect]
     Active Substance: TAGRAXOFUSP-ERZS
     Indication: Blastic plasmacytoid dendritic cell neoplasia
     Route: 042

REACTIONS (6)
  - Bacteraemia [Recovered/Resolved]
  - Lung opacity [Recovered/Resolved]
  - Lung consolidation [Recovered/Resolved]
  - Corynebacterium test positive [Recovered/Resolved]
  - Metastases to lung [Unknown]
  - Staphylococcus test positive [Recovered/Resolved]

NARRATIVE: CASE EVENT DATE: 20230807
